FAERS Safety Report 5610510-7 (Version None)
Quarter: 2008Q1

REPORT INFORMATION
  Report Type: 
  Country: None (occurrence: None)
  Receive Date: 20080201
  Receipt Date: 20080118
  Transmission Date: 20080703
  Serious: Yes (Hospitalization)
  Sender: FDA-Public Use
  Company Number: US-BAYER-US-2007-042875

PATIENT
  Age: 43 Year
  Sex: Female
  Weight: 59 kg

DRUGS (6)
  1. BETASERON [Suspect]
     Indication: RELAPSING-REMITTING MULTIPLE SCLEROSIS
     Dosage: TOTAL DAILY DOSE: 8 MIU
     Route: 058
     Dates: start: 20020805, end: 20070704
  2. BETASERON [Suspect]
     Dosage: UNIT DOSE: 8 MIU
     Route: 058
     Dates: start: 20070906
  3. MINOCYCLINE HCL [Suspect]
     Indication: RASH
  4. SYNTHROID [Concomitant]
  5. MICROGESTIN 1.5/30 [Concomitant]
  6. BACLOFEN [Concomitant]

REACTIONS (6)
  - BLOOD TEST ABNORMAL [None]
  - HAEMOLYTIC URAEMIC SYNDROME [None]
  - INFLUENZA LIKE ILLNESS [None]
  - INJECTION SITE PAIN [None]
  - MALAISE [None]
  - PLATELET COUNT DECREASED [None]
